FAERS Safety Report 14371269 (Version 4)
Quarter: 2018Q1

REPORT INFORMATION
  Report Type: Spontaneous
  Country: US (occurrence: US)
  Receive Date: 20180110
  Receipt Date: 20180314
  Transmission Date: 20180509
  Serious: Yes (Death, Other)
  Sender: FDA-Public Use
  Company Number: US-BIOGEN-2018BI00507626

PATIENT
  Age: 32 Year
  Sex: Female

DRUGS (2)
  1. SPINRAZA [Suspect]
     Active Substance: NUSINERSEN
     Indication: SPINAL MUSCULAR ATROPHY
     Route: 037
     Dates: start: 20170925, end: 20180108
  2. SPINRAZA [Suspect]
     Active Substance: NUSINERSEN
     Route: 065
     Dates: end: 20180107

REACTIONS (5)
  - Hallucination [Unknown]
  - Pneumonia [Fatal]
  - Cardio-respiratory arrest [Unknown]
  - Anxiety [Unknown]
  - Hypercapnia [Unknown]

NARRATIVE: CASE EVENT DATE: 20180107
